FAERS Safety Report 4269863-7 (Version None)
Quarter: 2004Q1

REPORT INFORMATION
  Report Type: 
  Country: None (occurrence: None)
  Receive Date: 20040112
  Receipt Date: 20040112
  Transmission Date: 20041129
  Serious: Yes (Hospitalization)
  Sender: FDA-Public Use
  Company Number: None

PATIENT
  Age: 91 Year
  Sex: Male

DRUGS (8)
  1. QUINIDINE HCL [Suspect]
     Indication: ARRHYTHMIA
     Dosage: 300 MG TID
     Route: 048
     Dates: start: 20000201
  2. NIFEDIPINE [Suspect]
     Indication: HYPERTENSION
     Dosage: 30 MG QD
     Dates: start: 20000201
  3. LORTAB [Concomitant]
  4. CALCITRIOL [Concomitant]
  5. LORATADINE [Concomitant]
  6. CALCIUM ACETATE [Concomitant]
  7. DICYCLOMINE [Concomitant]
  8. ACIPHEX [Concomitant]

REACTIONS (2)
  - ELECTROCARDIOGRAM QT PROLONGED [None]
  - NODAL ARRHYTHMIA [None]
